FAERS Safety Report 24967947 (Version 1)
Quarter: 2025Q1

REPORT INFORMATION
  Report Type: Spontaneous
  Country: HU (occurrence: HU)
  Receive Date: 20250214
  Receipt Date: 20250214
  Transmission Date: 20250409
  Serious: Yes (Other)
  Sender: CELLTRION
  Company Number: HU-AMGEN-HUNSP2024161360

PATIENT

DRUGS (4)
  1. ADALIMUMAB [Suspect]
     Active Substance: ADALIMUMAB
     Indication: Crohn^s disease
     Route: 065
  2. MESALAMINE [Concomitant]
     Active Substance: MESALAMINE
  3. CORTICOSTEROID NOS [Concomitant]
     Active Substance: CORTICOSTEROID NOS
  4. AZATHIOPRINE [Concomitant]
     Active Substance: AZATHIOPRINE

REACTIONS (2)
  - Polyarthritis [Unknown]
  - Drug ineffective [Unknown]
